FAERS Safety Report 14341495 (Version 1)
Quarter: 2018Q1

REPORT INFORMATION
  Report Type: Spontaneous
  Country: FR (occurrence: FR)
  Receive Date: 20180102
  Receipt Date: 20180102
  Transmission Date: 20180509
  Serious: Yes (Other)
  Sender: FDA-Public Use
  Company Number: FR-MERCK KGAA-2038099

PATIENT
  Age: 61 Year
  Sex: Female

DRUGS (11)
  1. PARACETAMOL [Concomitant]
     Active Substance: ACETAMINOPHEN
     Dates: start: 20170330
  2. BRYONIA [Concomitant]
  3. ZINNAT [Concomitant]
     Active Substance: CEFUROXIME AXETIL
     Dates: start: 20170330
  4. AESCULUS HIPPOCASTANUM [Concomitant]
     Active Substance: UNSPECIFIED INGREDIENT
     Dates: start: 20171117
  5. NOVOTHYROX [Suspect]
     Active Substance: LEVOTHYROXINE SODIUM
     Indication: POST PROCEDURAL HYPOTHYROIDISM
     Dates: start: 201706, end: 201709
  6. PREDNISOLONE. [Concomitant]
     Active Substance: PREDNISOLONE
     Dates: start: 20170330
  7. AURICULARUM [Concomitant]
     Active Substance: DEXAMETHASONE SODIUM PHOSPHATE\NYSTATIN\OXYTETRACYCLINE\POLYMYXIN B SULFATE
     Dates: start: 20170330
  8. ARNICA MONTANA. [Concomitant]
     Active Substance: HOMEOPATHICS
     Dates: start: 20171117
  9. HYPERICUM PERFORATUM [Concomitant]
     Active Substance: HYPERICUM PERFORATUM
     Dates: start: 20171117
  10. AVAMYS [Concomitant]
     Active Substance: FLUTICASONE FUROATE
     Route: 045
     Dates: start: 20170330
  11. ZYMAD [Concomitant]
     Active Substance: CHOLECALCIFEROL

REACTIONS (7)
  - Nausea [None]
  - Headache [None]
  - Hot flush [None]
  - Chest discomfort [None]
  - Insomnia [None]
  - Hyperhidrosis [None]
  - Mood swings [None]

NARRATIVE: CASE EVENT DATE: 201707
